FAERS Safety Report 7305663-9 (Version None)
Quarter: 2011Q1

REPORT INFORMATION
  Report Type: 
  Country: None (occurrence: None)
  Receive Date: 20110222
  Receipt Date: 20110222
  Transmission Date: 20110831
  Serious: Yes (Congenital Anomaly)
  Sender: FDA-Public Use
  Company Number: A0874329A

PATIENT

DRUGS (3)
  1. NORVIR [Suspect]
     Indication: HIV INFECTION
     Dosage: 100MG PER DAY
     Route: 064
     Dates: start: 20100211
  2. REYATAZ [Suspect]
     Indication: HIV INFECTION
     Dosage: 300MG PER DAY
     Route: 064
  3. EPZICOM [Suspect]
     Indication: HIV INFECTION
     Dosage: 600MG PER DAY
     Route: 064

REACTIONS (2)
  - FOETAL MALFORMATION [None]
  - DRUG EXPOSURE DURING PREGNANCY [None]
